FAERS Safety Report 9052649 (Version 1)
Quarter: 2013Q1

REPORT INFORMATION
  Report Type: Spontaneous
  Country: IT (occurrence: IT)
  Receive Date: 20130207
  Receipt Date: 20130207
  Transmission Date: 20140127
  Serious: Yes (Other)
  Sender: FDA-Public Use
  Company Number: IT-PFIZER INC-2013050704

PATIENT
  Age: 54 Year
  Sex: Female
  Weight: 51 kg

DRUGS (6)
  1. EPIRUBICIN HCL [Suspect]
     Indication: BREAST CANCER
     Dosage: 130 MG, CYCLIC
     Route: 042
     Dates: start: 20121206
  2. FLUOROURACIL [Suspect]
     Indication: BREAST CANCER
     Dosage: 860 MG, CYCLIC
     Route: 042
     Dates: start: 20121206
  3. CYCLOPHOSPHAMIDE [Suspect]
     Indication: BREAST CANCER
     Dosage: 860 MG, CYCLIC
     Dates: start: 20121206
  4. TENORETIC [Concomitant]
  5. XANAX [Concomitant]
  6. TAVOR [Concomitant]

REACTIONS (3)
  - Asthenia [Unknown]
  - Nausea [Unknown]
  - Neutropenia [Unknown]
